FAERS Safety Report 25772865 (Version 2)
Quarter: 2025Q4

REPORT INFORMATION
  Report Type: Spontaneous
  Country: US (occurrence: US)
  Receive Date: 20250908
  Receipt Date: 20251017
  Transmission Date: 20260117
  Serious: Yes (Other)
  Sender: AUROBINDO
  Company Number: US-MLMSERVICE-20250818-PI616558-00152-1

PATIENT
  Age: 60 Year
  Sex: Female
  Weight: 65 kg

DRUGS (4)
  1. FLUOROURACIL [Suspect]
     Active Substance: FLUOROURACIL
     Indication: Pancreatic carcinoma stage IV
     Dosage: 4250 MILLIGRAM, CYCLICAL (1ST CYCLE HOME-BASED INFUSION; 4250 MG OVER 48 HOURS)
     Route: 065
  2. OXALIPLATIN [Concomitant]
     Active Substance: OXALIPLATIN
     Indication: Pancreatic carcinoma stage IV
     Dosage: UNK UNK, CYCLICAL (11 CYCLES [1ST CYCLE HOME-BASED INFUSIONS; NEXT TWO CYCLES INPATIENT; FOLLOWED BY
     Route: 065
  3. LEUCOVORIN [Concomitant]
     Active Substance: LEUCOVORIN\LEUCOVORIN CALCIUM
     Indication: Pancreatic carcinoma stage IV
     Dosage: UNK UNK, CYCLICAL (11 CYCLES [1ST CYCLE HOME-BASED INFUSIONS; NEXT TWO CYCLES INPATIENT; FOLLOWED BY
     Route: 065
  4. IRINOTECAN [Concomitant]
     Active Substance: IRINOTECAN
     Indication: Pancreatic carcinoma stage IV
     Dosage: UNK UNK, CYCLICAL (11 CYCLES [1ST CYCLE HOME-BASED INFUSIONS; NEXT TWO CYCLES INPATIENT; FOLLOWED BY
     Route: 065

REACTIONS (2)
  - Arteriospasm coronary [Recovered/Resolved]
  - Myocardial stunning [Recovered/Resolved]
